FAERS Safety Report 21529699 (Version 6)
Quarter: 2022Q4

REPORT INFORMATION
  Report Type: Spontaneous
  Country: US (occurrence: US)
  Receive Date: 20221031
  Receipt Date: 20221228
  Transmission Date: 20230112
  Serious: Yes (Death)
  Sender: FDA-Public Use
  Company Number: US-PFIZER INC-PV202200092316

PATIENT
  Age: 77 Year
  Sex: Female

DRUGS (1)
  1. SUTENT [Suspect]
     Active Substance: SUNITINIB MALATE
     Indication: Gastrointestinal stromal tumour
     Dosage: 50 MG

REACTIONS (6)
  - Death [Fatal]
  - Movement disorder [Unknown]
  - Speech disorder [Unknown]
  - Hypoacusis [Unknown]
  - Feeling abnormal [Unknown]
  - Neoplasm progression [Unknown]
